FAERS Safety Report 7312979-9 (Version None)
Quarter: 2011Q1

REPORT INFORMATION
  Report Type: 
  Country: None (occurrence: None)
  Receive Date: 20110224
  Receipt Date: 20110217
  Transmission Date: 20110831
  Serious: Yes (Hospitalization, Other)
  Sender: FDA-Public Use
  Company Number: FR-BRISTOL-MYERS SQUIBB COMPANY-15558323

PATIENT
  Age: 78 Year
  Sex: Male

DRUGS (8)
  1. SERESTA [Concomitant]
  2. APROVEL [Concomitant]
  3. LERCAN [Concomitant]
  4. ELISOR [Concomitant]
  5. GLUCOPHAGE [Concomitant]
  6. COUMADIN [Suspect]
     Indication: ATRIAL FIBRILLATION
     Dates: end: 20110118
  7. CORDARONE [Concomitant]
  8. MODAMIDE [Concomitant]

REACTIONS (3)
  - INTERNATIONAL NORMALISED RATIO INCREASED [None]
  - FLAIL CHEST [None]
  - HAEMOTHORAX [None]
